FAERS Safety Report 9502188 (Version 2)
Quarter: 2013Q4

REPORT INFORMATION
  Report Type: Report from Study
  Country: US (occurrence: US)
  Receive Date: 20130906
  Receipt Date: 20131030
  Transmission Date: 20140711
  Serious: Yes (Death)
  Sender: FDA-Public Use
  Company Number: US-ROCHE-1271004

PATIENT
  Age: 32 Year
  Sex: Female

DRUGS (4)
  1. HERCEPTIN [Suspect]
     Indication: BREAST CANCER
     Dosage: ADJUVANT
     Route: 065
  2. HERCEPTIN [Suspect]
     Dosage: ADJUVANT
     Route: 065
  3. CYTOXAN [Concomitant]
  4. TAXOTERE [Concomitant]

REACTIONS (2)
  - Death [Fatal]
  - Rash [Unknown]
